FAERS Safety Report 13023575 (Version 1)
Quarter: 2016Q4

REPORT INFORMATION
  Report Type: Spontaneous
  Country: US (occurrence: US)
  Receive Date: 20161212
  Receipt Date: 20161212
  Transmission Date: 20170207
  Serious: Yes (Other)
  Sender: FDA-Public Use
  Company Number: None

PATIENT
  Age: 53 Year
  Sex: Female
  Weight: 87.75 kg

DRUGS (1)
  1. HYDROCODONE/ACETAMINOPHEN 10-325 [Suspect]
     Active Substance: ACETAMINOPHEN\HYDROCODONE
     Indication: ELBOW OPERATION
     Dosage: ?          QUANTITY:1 TABLET(S); EVERY 6 HOURS?
     Route: 048
     Dates: start: 20161128, end: 20161205

REACTIONS (2)
  - Therapy change [None]
  - Drug ineffective [None]

NARRATIVE: CASE EVENT DATE: 20161128
